FAERS Safety Report 5446910-8 (Version None)
Quarter: 2007Q3

REPORT INFORMATION
  Report Type: 
  Country: None (occurrence: None)
  Receive Date: 20070907
  Receipt Date: 20070831
  Transmission Date: 20080115
  Serious: Yes (Other)
  Sender: FDA-Public Use
  Company Number: JP-MERCK-0708USA01104

PATIENT
  Age: 62 Year
  Sex: Female

DRUGS (13)
  1. HYZAAR [Suspect]
     Indication: HYPERTENSION
     Route: 048
     Dates: start: 20070724, end: 20070724
  2. OLMESARTAN MEDOXOMIL [Concomitant]
     Indication: HYPERTENSION
     Route: 048
     Dates: start: 20060922, end: 20070723
  3. OLMESARTAN MEDOXOMIL [Concomitant]
     Route: 048
     Dates: start: 20070726
  4. AMLODIPINE BESYLATE [Concomitant]
     Route: 048
     Dates: start: 20060824
  5. DOXAZOSIN MESYLATE [Concomitant]
     Indication: HYPERTENSION
     Route: 048
     Dates: start: 20061002
  6. METICRANE [Concomitant]
     Route: 048
     Dates: start: 20061130
  7. ZOCOR [Concomitant]
     Indication: HYPERLIPIDAEMIA
     Route: 048
     Dates: start: 20060828
  8. AMARYL [Concomitant]
     Indication: DIABETES MELLITUS
     Route: 048
     Dates: start: 20061019
  9. ASPIRIN [Concomitant]
     Indication: ATRIAL FIBRILLATION
     Route: 048
     Dates: start: 20060825
  10. PEPCID [Concomitant]
     Indication: GASTRIC ULCER
     Route: 048
     Dates: start: 20060511
  11. BUSCOPAN [Concomitant]
     Indication: GASTRITIS
     Route: 048
     Dates: start: 20060511
  12. MUCOSTA [Concomitant]
     Indication: GASTRITIS
     Route: 048
     Dates: start: 20060511
  13. PROMID [Concomitant]
     Indication: GASTRITIS
     Route: 048
     Dates: start: 20060511

REACTIONS (2)
  - MALAISE [None]
  - SHOCK [None]
